FAERS Safety Report 17641565 (Version 1)
Quarter: 2020Q2

REPORT INFORMATION
  Report Type: Report from Study
  Country: US (occurrence: US)
  Receive Date: 20200407
  Receipt Date: 20200407
  Transmission Date: 20200713
  Serious: Yes (Death)
  Sender: FDA-Public Use
  Company Number: US-EXELIXIS-CABO-20028662

PATIENT
  Sex: Male
  Weight: 95.69 kg

DRUGS (12)
  1. AMLODIPINE BESYLATE. [Concomitant]
     Active Substance: AMLODIPINE BESYLATE
     Dosage: UNK
  2. VITAMIN B COMPLEX [Concomitant]
     Active Substance: CYANOCOBALAMIN\DEXPANTHENOL\NIACINAMIDE\PYRIDOXINE HYDROCHLORIDE\RIBOFLAVIN 5^-PHOSPHATE SODIUM\THIAMINE HYDROCHLORIDE\VITAMIN B COMPLEX
     Dosage: UNK
  3. FENTANYL. [Concomitant]
     Active Substance: FENTANYL
     Dosage: UNK
  4. METOPROLOL TARTRATE. [Concomitant]
     Active Substance: METOPROLOL TARTRATE
     Dosage: UNK
  5. ONDANSETRON [Concomitant]
     Active Substance: ONDANSETRON
     Dosage: UNK
  6. TRAMADOL. [Concomitant]
     Active Substance: TRAMADOL
     Dosage: UNK
  7. CABOMETYX [Suspect]
     Active Substance: CABOZANTINIB S-MALATE
     Indication: RENAL CANCER
     Dosage: 60 MG, QD
     Route: 048
  8. HYDROMORPHONE [Concomitant]
     Active Substance: HYDROMORPHONE
     Dosage: UNK
  9. OSELTAMIVIR PHOSPHATE. [Concomitant]
     Active Substance: OSELTAMIVIR PHOSPHATE
     Dosage: UNK
  10. INLYTA [Concomitant]
     Active Substance: AXITINIB
     Dosage: UNK
  11. MORPHINE [Concomitant]
     Active Substance: MORPHINE
     Dosage: UNK
  12. HYDROCORTISONE. [Concomitant]
     Active Substance: HYDROCORTISONE
     Dosage: UNK

REACTIONS (1)
  - Death [Fatal]
